FAERS Safety Report 6213012-2 (Version None)
Quarter: 2009Q2

REPORT INFORMATION
  Report Type: 
  Country: None (occurrence: None)
  Receive Date: 20090528
  Receipt Date: 20080812
  Transmission Date: 20091009
  Serious: Yes (Disabling, Other)
  Sender: FDA-Public Use
  Company Number: 175287USA

PATIENT
  Age: 75 Year
  Sex: Female
  Weight: 77.1115 kg

DRUGS (2)
  1. GABAPENTIN [Suspect]
     Indication: CONVULSION
     Dosage: (300 MG), ORAL
     Route: 048
     Dates: start: 20060905
  2. LEVOTHYROXINE SODIUM [Suspect]
     Dosage: ORAL
     Route: 048
     Dates: start: 20060905

REACTIONS (2)
  - BLINDNESS [None]
  - RETINAL INJURY [None]
